FAERS Safety Report 19274283 (Version 1)
Quarter: 2021Q2

REPORT INFORMATION
  Report Type: Spontaneous
  Country: US (occurrence: US)
  Receive Date: 20210519
  Receipt Date: 20210519
  Transmission Date: 20210717
  Serious: Yes (Death)
  Sender: FDA-Public Use
  Company Number: None

PATIENT
  Age: 42 Year
  Sex: Male
  Weight: 121.5 kg

DRUGS (6)
  1. KRATOM [Suspect]
     Active Substance: HERBALS\MITRAGYNINE
     Indication: DRUG THERAPY
     Dates: start: 20200301, end: 20210320
  2. LISINOPRIL AND HYDROCHLOROTHIAZIDE [Concomitant]
     Active Substance: HYDROCHLOROTHIAZIDE\LISINOPRIL
  3. PAROXETINE. [Concomitant]
     Active Substance: PAROXETINE
  4. CLONAZEPAM. [Concomitant]
     Active Substance: CLONAZEPAM
  5. RISPERIDONE. [Concomitant]
     Active Substance: RISPERIDONE
  6. LAMOTRIGINE. [Concomitant]
     Active Substance: LAMOTRIGINE

REACTIONS (2)
  - Substance use [None]
  - Toxicity to various agents [None]

NARRATIVE: CASE EVENT DATE: 20210320
